FAERS Safety Report 9742141 (Version 3)
Quarter: 2014Q1

REPORT INFORMATION
  Report Type: Spontaneous
  Country: US (occurrence: US)
  Receive Date: 20131210
  Receipt Date: 20140122
  Transmission Date: 20141002
  Serious: Yes (Other)
  Sender: FDA-Public Use
  Company Number: US-NAPPMUNDI-USA-2013-0109277

PATIENT
  Age: 30 Year
  Sex: Female

DRUGS (11)
  1. MS CONTIN TABLETS [Suspect]
     Indication: THORACIC OUTLET SYNDROME
     Dosage: 1 TABLET, SEE TEXT
     Route: 048
     Dates: start: 2007
  2. MS CONTIN TABLETS [Suspect]
     Dosage: 130 MG, BID
     Route: 048
     Dates: start: 20070309, end: 20070501
  3. XANAX [Concomitant]
     Dosage: 0.5 MG, TID
     Dates: end: 20070501
  4. SOMA [Concomitant]
  5. NEURONTIN [Concomitant]
     Indication: PAIN
     Dosage: 300-600MGUNK
     Dates: start: 20070220
  6. NEURONTIN [Concomitant]
     Dosage: 200 MG, Q8H
  7. PROVIGIL [Concomitant]
     Indication: PAIN
     Dosage: 200 MG, UNK
     Dates: start: 20070220
  8. CYMBALTA [Concomitant]
     Indication: ANXIETY
     Dosage: UNK
     Dates: start: 20070501
  9. LYRICA [Concomitant]
     Indication: PAIN
  10. EFFEXOR [Concomitant]
     Indication: DEPRESSION
     Dosage: UNK
  11. METHADONE [Concomitant]
     Indication: PAIN
     Dosage: UNK
     Dates: start: 20070501

REACTIONS (8)
  - Tooth loss [Not Recovered/Not Resolved]
  - Back pain [Unknown]
  - Neck pain [Unknown]
  - Pain in extremity [Unknown]
  - Anxiety [Unknown]
  - Pain [Unknown]
  - Breakthrough pain [Unknown]
  - Dry mouth [Unknown]
